FAERS Safety Report 7803483-X (Version None)
Quarter: 2011Q4

REPORT INFORMATION
  Report Type: 
  Country: None (occurrence: None)
  Receive Date: 20111007
  Receipt Date: 20110922
  Transmission Date: 20120403
  Serious: Yes (Other)
  Sender: FDA-Public Use
  Company Number: US-ROCHE-770822

PATIENT
  Sex: Female

DRUGS (3)
  1. BONIVA [Suspect]
     Indication: PRODUCT USED FOR UNKNOWN INDICATION
     Route: 048
     Dates: start: 20110101, end: 20110331
  2. CRESTOR [Concomitant]
  3. ZETIA [Concomitant]

REACTIONS (4)
  - VOMITING [None]
  - LOSS OF CONSCIOUSNESS [None]
  - DELIRIUM [None]
  - PRODUCT QUALITY ISSUE [None]
